FAERS Safety Report 22009425 (Version 2)
Quarter: 2023Q1

REPORT INFORMATION
  Report Type: Report from Study
  Country: IE (occurrence: IE)
  Receive Date: 20230220
  Receipt Date: 20230306
  Transmission Date: 20230418
  Serious: No
  Sender: FDA-Public Use
  Company Number: IE-JNJFOC-20230208842

PATIENT
  Age: 26 Year
  Sex: Male

DRUGS (2)
  1. STELARA [Suspect]
     Active Substance: USTEKINUMAB
     Indication: Crohn^s disease
     Dosage: STRENGTH: 90.00 MG/ML
     Route: 058
     Dates: start: 20230203
  2. STELARA [Suspect]
     Active Substance: USTEKINUMAB
     Route: 040
     Dates: start: 20221208

REACTIONS (2)
  - Inappropriate schedule of product administration [Unknown]
  - Device deployment issue [Unknown]

NARRATIVE: CASE EVENT DATE: 20230203
